FAERS Safety Report 6201556-9 (Version None)
Quarter: 2009Q2

REPORT INFORMATION
  Report Type: 
  Country: None (occurrence: None)
  Receive Date: 20090519
  Receipt Date: 20090512
  Transmission Date: 20091009
  Serious: Yes (Death)
  Sender: FDA-Public Use
  Company Number: 2009SP010182

PATIENT
  Age: 39 Year
  Sex: Male
  Weight: 87 kg

DRUGS (6)
  1. POSACONAZOLE [Suspect]
     Indication: ANTIFUNGAL PROPHYLAXIS
     Dosage: 400 MG; BID; 200 MG; TID; 200 MG; QID
  2. POSACONAZOLE [Suspect]
     Indication: PULMONARY MYCOSIS
     Dosage: 400 MG; BID; 200 MG; TID; 200 MG; QID
  3. VANCOMYCIN HCL [Concomitant]
  4. TAZOBACTAM/PIPERACILLIN [Concomitant]
  5. LINEZOLID [Concomitant]
  6. AMPHOTERICIN B [Concomitant]

REACTIONS (10)
  - ACUTE MYELOID LEUKAEMIA RECURRENT [None]
  - ACUTE RESPIRATORY DISTRESS SYNDROME [None]
  - BLOOD CULTURE POSITIVE [None]
  - DIALYSIS [None]
  - DRUG RESISTANCE [None]
  - METASTASES TO MENINGES [None]
  - MULTI-ORGAN FAILURE [None]
  - RENAL FAILURE ACUTE [None]
  - SEPTIC SHOCK [None]
  - SYSTEMIC CANDIDA [None]
